FAERS Safety Report 4636702-1 (Version None)
Quarter: 2005Q2

REPORT INFORMATION
  Report Type: 
  Country: None (occurrence: None)
  Receive Date: 20050414
  Receipt Date: 20050331
  Transmission Date: 20051028
  Serious: Yes (Other)
  Sender: FDA-Public Use
  Company Number: 2005051598

PATIENT
  Sex: Male
  Weight: 77.1115 kg

DRUGS (9)
  1. DETROL LA [Suspect]
     Indication: MICTURITION URGENCY
     Dosage: 4 MG (2 MG, 2 IN 1 D), ORAL
     Route: 048
  2. CELEBREX [Suspect]
     Indication: ILL-DEFINED DISORDER
     Dosage: (200 MG), ORAL
     Route: 048
  3. DOXAZOSIN MESYLATE [Concomitant]
  4. LISINOPRIL [Concomitant]
  5. RANTIDINE HYDROCHLORIDE (RANTIDINE HYDROCHLORIDE) [Concomitant]
  6. LANSOPRAZOLE [Concomitant]
  7. ALL OTHER THERAPEUTIC  PRDOUCTS(ALL OTHER THERAPEUTIC PRODUCTS) [Concomitant]
  8. HYDROCHLOROTHIAZIDE [Concomitant]
  9. AMITRIPTYLINE HCL [Concomitant]

REACTIONS (2)
  - DRUG INEFFECTIVE [None]
  - PAIN [None]
